FAERS Safety Report 6180611-6 (Version None)
Quarter: 2009Q2

REPORT INFORMATION
  Report Type: 
  Country: None (occurrence: None)
  Receive Date: 20090504
  Receipt Date: 20090429
  Transmission Date: 20091009
  Serious: Yes (Other)
  Sender: FDA-Public Use
  Company Number: 1000006023

PATIENT
  Age: 41 Year
  Sex: Female

DRUGS (21)
  1. CELEXA [Suspect]
     Indication: ANXIETY
     Dosage: 5 MG (5 MG, 1 IN 1 D) , ORAL; 10 MG (10 MG,1 IN 1 D),ORAL
     Route: 048
     Dates: start: 20080601, end: 20080101
  2. CELEXA [Suspect]
     Indication: POSTPARTUM DEPRESSION
     Dosage: 5 MG (5 MG, 1 IN 1 D) , ORAL; 10 MG (10 MG,1 IN 1 D),ORAL
     Route: 048
     Dates: start: 20080601, end: 20080101
  3. CELEXA [Suspect]
     Indication: PREMENSTRUAL SYNDROME
     Dosage: 5 MG (5 MG, 1 IN 1 D) , ORAL; 10 MG (10 MG,1 IN 1 D),ORAL
     Route: 048
     Dates: start: 20080601, end: 20080101
  4. CELEXA [Suspect]
     Indication: ANXIETY
     Dosage: 5 MG (5 MG, 1 IN 1 D) , ORAL; 10 MG (10 MG,1 IN 1 D),ORAL
     Route: 048
     Dates: start: 20080101, end: 20081001
  5. CELEXA [Suspect]
     Indication: POSTPARTUM DEPRESSION
     Dosage: 5 MG (5 MG, 1 IN 1 D) , ORAL; 10 MG (10 MG,1 IN 1 D),ORAL
     Route: 048
     Dates: start: 20080101, end: 20081001
  6. CELEXA [Suspect]
     Indication: PREMENSTRUAL SYNDROME
     Dosage: 5 MG (5 MG, 1 IN 1 D) , ORAL; 10 MG (10 MG,1 IN 1 D),ORAL
     Route: 048
     Dates: start: 20080101, end: 20081001
  7. CELEXA [Suspect]
     Indication: ANXIETY
     Dosage: 20 MG (20 MG,  1  IN 1 D) , ORAL; 10 MG (10 MG,1 IN 1 D),ORAL
     Route: 048
     Dates: start: 20081001, end: 20081001
  8. CELEXA [Suspect]
     Indication: POSTPARTUM DEPRESSION
     Dosage: 20 MG (20 MG,  1  IN 1 D) , ORAL; 10 MG (10 MG,1 IN 1 D),ORAL
     Route: 048
     Dates: start: 20081001, end: 20081001
  9. CELEXA [Suspect]
     Indication: PREMENSTRUAL SYNDROME
     Dosage: 20 MG (20 MG,  1  IN 1 D) , ORAL; 10 MG (10 MG,1 IN 1 D),ORAL
     Route: 048
     Dates: start: 20081001, end: 20081001
  10. CELEXA [Suspect]
     Indication: ANXIETY
     Dosage: 20 MG (20 MG,  1  IN 1 D) , ORAL; 10 MG (10 MG,1 IN 1 D),ORAL
     Route: 048
     Dates: start: 20081001, end: 20081012
  11. CELEXA [Suspect]
     Indication: POSTPARTUM DEPRESSION
     Dosage: 20 MG (20 MG,  1  IN 1 D) , ORAL; 10 MG (10 MG,1 IN 1 D),ORAL
     Route: 048
     Dates: start: 20081001, end: 20081012
  12. CELEXA [Suspect]
     Indication: PREMENSTRUAL SYNDROME
     Dosage: 20 MG (20 MG,  1  IN 1 D) , ORAL; 10 MG (10 MG,1 IN 1 D),ORAL
     Route: 048
     Dates: start: 20081001, end: 20081012
  13. CELEXA [Suspect]
     Indication: ANXIETY
     Dosage: 20 MG (20 MG, 1 IN 1 D),ORAL; 10 MG (10 MG,1 IN 1 D),ORAL;  5 MG (5 MG, 1N 1 D),ORAL
     Route: 048
     Dates: start: 20081113, end: 20081115
  14. CELEXA [Suspect]
     Indication: POSTPARTUM DEPRESSION
     Dosage: 20 MG (20 MG, 1 IN 1 D),ORAL; 10 MG (10 MG,1 IN 1 D),ORAL;  5 MG (5 MG, 1N 1 D),ORAL
     Route: 048
     Dates: start: 20081113, end: 20081115
  15. CELEXA [Suspect]
     Indication: PREMENSTRUAL SYNDROME
     Dosage: 20 MG (20 MG, 1 IN 1 D),ORAL; 10 MG (10 MG,1 IN 1 D),ORAL;  5 MG (5 MG, 1N 1 D),ORAL
     Route: 048
     Dates: start: 20081113, end: 20081115
  16. CELEXA [Suspect]
     Indication: ANXIETY
     Dosage: 20 MG (20 MG, 1 IN 1 D),ORAL; 10 MG (10 MG,1 IN 1 D),ORAL;  5 MG (5 MG, 1N 1 D),ORAL
     Route: 048
     Dates: start: 20081116, end: 20081122
  17. CELEXA [Suspect]
     Indication: POSTPARTUM DEPRESSION
     Dosage: 20 MG (20 MG, 1 IN 1 D),ORAL; 10 MG (10 MG,1 IN 1 D),ORAL;  5 MG (5 MG, 1N 1 D),ORAL
     Route: 048
     Dates: start: 20081116, end: 20081122
  18. CELEXA [Suspect]
     Indication: PREMENSTRUAL SYNDROME
     Dosage: 20 MG (20 MG, 1 IN 1 D),ORAL; 10 MG (10 MG,1 IN 1 D),ORAL;  5 MG (5 MG, 1N 1 D),ORAL
     Route: 048
     Dates: start: 20081116, end: 20081122
  19. CELEXA [Suspect]
     Indication: ANXIETY
     Dosage: 20 MG (20 MG, 1 IN 1 D),ORAL; 10 MG (10 MG,1 IN 1 D),ORAL;  5 MG (5 MG, 1N 1 D),ORAL
     Route: 048
     Dates: start: 20081123, end: 20081129
  20. CELEXA [Suspect]
     Indication: POSTPARTUM DEPRESSION
     Dosage: 20 MG (20 MG, 1 IN 1 D),ORAL; 10 MG (10 MG,1 IN 1 D),ORAL;  5 MG (5 MG, 1N 1 D),ORAL
     Route: 048
     Dates: start: 20081123, end: 20081129
  21. CELEXA [Suspect]
     Indication: PREMENSTRUAL SYNDROME
     Dosage: 20 MG (20 MG, 1 IN 1 D),ORAL; 10 MG (10 MG,1 IN 1 D),ORAL;  5 MG (5 MG, 1N 1 D),ORAL
     Route: 048
     Dates: start: 20081123, end: 20081129

REACTIONS (5)
  - AGGRESSION [None]
  - ANGER [None]
  - ANXIETY [None]
  - CONDITION AGGRAVATED [None]
  - PHYSICAL ASSAULT [None]
